FAERS Safety Report 25063412 (Version 1)
Quarter: 2025Q1

REPORT INFORMATION
  Report Type: Report from Study
  Country: US (occurrence: US)
  Receive Date: 20250311
  Receipt Date: 20250311
  Transmission Date: 20250409
  Serious: Yes (Other)
  Sender: ACADIA PHARMACEUTICALS
  Company Number: US-ACADIA PHARMACEUTICALS INC.-ACA-2025-PIM-002564

PATIENT
  Sex: Male

DRUGS (14)
  1. NUPLAZID [Suspect]
     Active Substance: PIMAVANSERIN TARTRATE
     Indication: Parkinson^s disease
     Dosage: 10 MILLIGRAM, QD
     Route: 048
     Dates: start: 20250225
  2. VENLAFAXINE [Concomitant]
     Active Substance: VENLAFAXINE HYDROCHLORIDE
  3. CLONAZEPAM [Concomitant]
     Active Substance: CLONAZEPAM
  4. SOLIFENACIN SUCCINATE [Concomitant]
     Active Substance: SOLIFENACIN SUCCINATE
  5. SELEGILINE [Concomitant]
     Active Substance: SELEGILINE
  6. HERBALS\TURMERIC [Concomitant]
     Active Substance: HERBALS\TURMERIC
  7. TADALAFIL [Concomitant]
     Active Substance: TADALAFIL
  8. DONEPEZIL [Concomitant]
     Active Substance: DONEPEZIL
  9. METAMUCIL [Concomitant]
     Active Substance: PLANTAGO SEED
  10. DIETARY SUPPLEMENT\HERBALS [Concomitant]
     Active Substance: DIETARY SUPPLEMENT\HERBALS
  11. CULTURELLE [Concomitant]
     Active Substance: LACTOBACILLUS RHAMNOSUS
  12. VITAMIN D3 [Concomitant]
     Active Substance: CHOLECALCIFEROL
  13. SINEMET [Concomitant]
     Active Substance: CARBIDOPA\LEVODOPA
  14. MELATONIN [Concomitant]
     Active Substance: MELATONIN

REACTIONS (4)
  - Hallucination, visual [Unknown]
  - Walking aid user [Unknown]
  - Peripheral swelling [Unknown]
  - Constipation [Not Recovered/Not Resolved]
